FAERS Safety Report 8525546-6 (Version None)
Quarter: 2012Q3

REPORT INFORMATION
  Report Type: 
  Country: None (occurrence: None)
  Receive Date: 20120720
  Receipt Date: 20120711
  Transmission Date: 20120928
  Serious: Yes (Other)
  Sender: FDA-Public Use
  Company Number: US-ASTRAZENECA-2011SE32539

PATIENT
  Age: 77 Year
  Sex: Male
  Weight: 72.6 kg

DRUGS (11)
  1. SEROQUEL [Suspect]
     Route: 048
  2. SEROQUEL [Suspect]
     Route: 048
  3. NORVASC [Concomitant]
  4. ACIPHEX [Concomitant]
  5. LIPITOR [Suspect]
     Route: 065
  6. SEROQUEL [Suspect]
     Indication: DEPRESSION
     Route: 048
     Dates: start: 20080101
  7. SEROQUEL [Suspect]
     Route: 048
  8. ACITEN [Concomitant]
     Indication: DYSPEPSIA
  9. CITALOPRAM HYDROBROMIDE [Concomitant]
  10. SEROQUEL [Suspect]
     Indication: IMPULSE-CONTROL DISORDER
     Route: 048
     Dates: start: 20080101
  11. SEROQUEL [Suspect]
     Route: 048

REACTIONS (11)
  - THERAPEUTIC RESPONSE UNEXPECTED [None]
  - MALAISE [None]
  - DRUG DOSE OMISSION [None]
  - LUMBAR VERTEBRAL FRACTURE [None]
  - INSOMNIA [None]
  - FEELING ABNORMAL [None]
  - SUICIDAL IDEATION [None]
  - OFF LABEL USE [None]
  - BACK PAIN [None]
  - NERVOUSNESS [None]
  - ANXIETY [None]
